FAERS Safety Report 18690456 (Version 4)
Quarter: 2021Q2

REPORT INFORMATION
  Report Type: Report from Study
  Country: NL (occurrence: NL)
  Receive Date: 20201231
  Receipt Date: 20210416
  Transmission Date: 20210717
  Serious: Yes (Death, Other)
  Sender: FDA-Public Use
  Company Number: NL-REGENERON PHARMACEUTICALS, INC.-2020-96160

PATIENT

DRUGS (23)
  1. CEMIPLIMAB [Suspect]
     Active Substance: CEMIPLIMAB
     Dosage: 350 MG, Q3W
     Route: 042
     Dates: start: 20200817, end: 20200817
  2. DEXAMETHASON [DEXAMETHASONE] [Concomitant]
     Active Substance: DEXAMETHASONE
     Indication: ADJUVANT THERAPY
     Dosage: TOTAL DAILY DOSE: 8 MG
     Route: 042
     Dates: start: 20201226, end: 20201226
  3. CLEMASTINE [Concomitant]
     Active Substance: CLEMASTINE
     Indication: PRODUCT USED FOR UNKNOWN INDICATION
     Dosage: 2 MG, 1X
     Route: 042
     Dates: start: 20201214, end: 20201214
  4. OXYCODONE [Concomitant]
     Active Substance: OXYCODONE
     Dosage: CONTROLLED RELEASE
     Route: 048
     Dates: start: 20201127, end: 20201216
  5. SAR439459 [Suspect]
     Active Substance: SAR-439459
     Indication: BLADDER TRANSITIONAL CELL CARCINOMA
     Dosage: 22.5 MG/KG, Q3W
     Route: 042
     Dates: start: 20201214, end: 20201214
  6. MORPHINE [Concomitant]
     Active Substance: MORPHINE
     Dosage: TOTAL DAILY DOSE: 120 MG
     Route: 048
     Dates: start: 20201220, end: 20201221
  7. SAR439459 [Suspect]
     Active Substance: SAR-439459
     Dosage: 22.5 MG/KG, Q3W
     Route: 042
     Dates: start: 20200817, end: 20200817
  8. PANTOPRAZOLE [Concomitant]
     Active Substance: PANTOPRAZOLE
     Indication: PRODUCT USED FOR UNKNOWN INDICATION
     Dosage: TOTAL DAILY DOSE: 40 MG
     Route: 048
     Dates: start: 20190214, end: 20201226
  9. PARACETAMOL [Concomitant]
     Active Substance: ACETAMINOPHEN
     Indication: PRODUCT USED FOR UNKNOWN INDICATION
     Dosage: TOTAL DAILY DOSE: 4000 MG
     Route: 048
     Dates: start: 20200813, end: 20201226
  10. FEXOFENADINE [Concomitant]
     Active Substance: FEXOFENADINE HYDROCHLORIDE
     Indication: PRODUCT USED FOR UNKNOWN INDICATION
     Dosage: TOTAL DAILY DOSE: 360 MG
     Route: 048
     Dates: start: 20201222, end: 20201226
  11. HYDROXYZINE [Concomitant]
     Active Substance: HYDROXYZINE HYDROCHLORIDE
     Indication: PRODUCT USED FOR UNKNOWN INDICATION
     Dosage: TOTAL DAILY DOSE: 50 MG
     Route: 048
     Dates: start: 20201222, end: 20201222
  12. CLOBETASOL [Concomitant]
     Active Substance: CLOBETASOL
     Indication: PRODUCT USED FOR UNKNOWN INDICATION
     Dosage: 2 APPLICATION UNIT
     Route: 061
     Dates: start: 20201222, end: 20201226
  13. MORPHINE [Concomitant]
     Active Substance: MORPHINE
     Indication: PRODUCT USED FOR UNKNOWN INDICATION
     Dosage: TOTAL DAILY DOSE:1 MG/H
     Route: 058
     Dates: start: 20201218, end: 20201222
  14. MORPHINE [Concomitant]
     Active Substance: MORPHINE
     Dosage: TOTAL DAILY DOSE:2 MG/H
     Route: 058
     Dates: start: 20201223, end: 20201228
  15. CEMIPLIMAB [Suspect]
     Active Substance: CEMIPLIMAB
     Indication: BLADDER TRANSITIONAL CELL CARCINOMA
     Dosage: 350 MG, Q3W
     Route: 042
     Dates: start: 20201214, end: 20201214
  16. LORATADINE. [Concomitant]
     Active Substance: LORATADINE
     Indication: PRODUCT USED FOR UNKNOWN INDICATION
     Dosage: TOTAL DAILY DOSE: 20 MG
     Route: 048
     Dates: start: 20200914, end: 20201221
  17. HALOPERIDOL. [Concomitant]
     Active Substance: HALOPERIDOL
     Indication: PRODUCT USED FOR UNKNOWN INDICATION
     Dosage: TOTAL DAILY DOSE: 3 MG
     Route: 048
     Dates: start: 20201221, end: 20201226
  18. OXYCODONE [Concomitant]
     Active Substance: OXYCODONE
     Indication: PRODUCT USED FOR UNKNOWN INDICATION
     Dosage: (IMMEDIATE RELEASE)
     Route: 048
     Dates: start: 20201130, end: 20201218
  19. DICLOFENAC SODIUM. [Concomitant]
     Active Substance: DICLOFENAC SODIUM
     Indication: PRODUCT USED FOR UNKNOWN INDICATION
     Dosage: TOTAL DAILY DOSE: 150 MG
     Route: 048
     Dates: start: 20201123, end: 20201218
  20. PREDNISOLONE. [Concomitant]
     Active Substance: PREDNISOLONE
     Indication: PRODUCT USED FOR UNKNOWN INDICATION
     Dosage: TOTAL DAILY DOSE: 5 MG
     Route: 048
     Dates: start: 20201122, end: 20201217
  21. NAPROXEN. [Concomitant]
     Active Substance: NAPROXEN
     Indication: PRODUCT USED FOR UNKNOWN INDICATION
     Dosage: TOTAL DAILY DOSE: 1000 MG
     Route: 048
     Dates: start: 20201218, end: 20201226
  22. MORPHINE [Concomitant]
     Active Substance: MORPHINE
     Dosage: TOTAL DAILY DOSE: 80 MG
     Route: 048
     Dates: start: 20201220, end: 20201221
  23. CIPROFLOXACINE                     /00697201/ [Concomitant]
     Active Substance: CIPROFLOXACIN
     Indication: PRODUCT USED FOR UNKNOWN INDICATION
     Dosage: TOTAL DAILY DOSE: 1000 MG
     Route: 048
     Dates: start: 20201222, end: 20201226

REACTIONS (2)
  - Tumour haemorrhage [Fatal]
  - Infusion site extravasation [Recovered/Resolved]

NARRATIVE: CASE EVENT DATE: 20201214
